FAERS Safety Report 5062125-X (Version None)
Quarter: 2006Q3

REPORT INFORMATION
  Report Type: 
  Country: None (occurrence: None)
  Receive Date: 20060703
  Receipt Date: 20051007
  Transmission Date: 20061208
  Serious: Yes (Life-Threatening)
  Sender: FDA-Public Use
  Company Number: 2005S1009963

PATIENT
  Age: 72 Year
  Sex: Male
  Weight: 119.296 kg

DRUGS (16)
  1. CLOZAPINE [Suspect]
     Indication: SCHIZOPHRENIA, PARANOID TYPE
     Dosage: 400 MG; HS; PO
     Route: 048
     Dates: start: 20010604, end: 20051012
  2. ACETYLSALICYLIC ACID SRT [Concomitant]
  3. RISPERIDONE [Concomitant]
  4. LEVOTHYROXINE SODIUM [Concomitant]
  5. DOCUSATE SODIUM [Concomitant]
  6. LACTULOSE [Concomitant]
  7. MULTIVITAMINS, PLAIN [Concomitant]
  8. CALCIUM GLUCONATE [Concomitant]
  9. DIMETICONE, ACTIVATED [Concomitant]
  10. METOPROLOL TARTRATE [Concomitant]
  11. ACETAMINOPHEN [Concomitant]
  12. FENTANYL [Concomitant]
  13. TRAMADOL HCL [Concomitant]
  14. NAPROXEN [Concomitant]
  15. HALOPERIDOL [Concomitant]
  16. TRAZODONE HCL [Concomitant]

REACTIONS (3)
  - AGRANULOCYTOSIS [None]
  - GRANULOCYTOPENIA [None]
  - LEUKOPENIA [None]
